FAERS Safety Report 5218253-9 (Version None)
Quarter: 2007Q1

REPORT INFORMATION
  Report Type: 
  Country: None (occurrence: None)
  Receive Date: 20061130
  Receipt Date: 20060504
  Transmission Date: 20070707
  Serious: Yes (Other)
  Sender: FDA-Public Use
  Company Number: US_0508120922

PATIENT
  Age: 48 Year
  Sex: Female
  Weight: 102 kg

DRUGS (15)
  1. ZYPREXA [Suspect]
     Indication: BIPOLAR DISORDER
     Dosage: SEE IMAGE
     Route: 048
     Dates: start: 19980718, end: 20010822
  2. ZYPREXA [Suspect]
     Indication: BIPOLAR DISORDER
     Dosage: SEE IMAGE
     Route: 048
     Dates: start: 20010822, end: 20030513
  3. ZYPREXA [Suspect]
     Indication: BIPOLAR DISORDER
     Dosage: SEE IMAGE
     Route: 048
     Dates: start: 20030513
  4. PROZAC [Concomitant]
  5. DEPAKOTE [Concomitant]
  6. LOTENSIN [Concomitant]
  7. LISINOPRIL [Concomitant]
  8. ATACAND [Concomitant]
  9. TRAZODONE HCL [Concomitant]
  10. KLONOPIN [Concomitant]
  11. VOLTAREN [Concomitant]
  12. LASIX (FUROSEMIDE, FUROSEMIDE SODIUM) [Concomitant]
  13. POTASSIUM CHLORIDE (POTASSIUM CHLORIDE UNKNOWN FORMULATION) [Concomitant]
  14. CELEBREX [Concomitant]
  15. ELAVIL [Concomitant]

REACTIONS (8)
  - CHEST DISCOMFORT [None]
  - DIABETES MELLITUS NON-INSULIN-DEPENDENT [None]
  - HEPATIC STEATOSIS [None]
  - HYPERLIPIDAEMIA [None]
  - LIVER FUNCTION TEST ABNORMAL [None]
  - NEUROPATHY PERIPHERAL [None]
  - VENOUS INSUFFICIENCY [None]
  - WEIGHT INCREASED [None]
